FAERS Safety Report 9506087 (Version 1)
Quarter: 2013Q1

REPORT INFORMATION
  Report Type: Spontaneous
  Country: US (occurrence: None)
  Receive Date: 20130305
  Receipt Date: 20130305
  Transmission Date: 20140127
  Serious: No
  Sender: FDA-Public Use
  Company Number: 1000039358

PATIENT
  Age: 72 Year
  Sex: Male

DRUGS (13)
  1. DALIRESP (ROFLUMILAST) (500 MICROGRAM, TABLETS) [Suspect]
     Indication: CHRONIC OBSTRUCTIVE PULMONARY DISEASE
     Dosage: 500MG (500 MCG, 1 IN 1 D), ORAL
     Route: 048
     Dates: start: 20120918, end: 20120924
  2. DALIRESP (ROFLUMILAST) (500 MICROGRAM, TABLETS) [Suspect]
     Indication: CHRONIC OBSTRUCTIVE PULMONARY DISEASE
     Dosage: 500MG (500 MCG, 1 IN 1 D), ORAL
     Route: 048
     Dates: start: 20121005
  3. DALIRESP (ROFLUMILAST) (500 MICROGRAM, TABLETS) [Suspect]
  4. SYMBICORT (BUDESONIDE W/FORMOTEROL FUMARATE) (BUDESONIDE W/FORMOTEROL FUMARATE) [Concomitant]
  5. ALBUTEROL SULFATE (SALBUTAMOL SULFATE) (SALBUTAMOL SULFATE) [Concomitant]
  6. OMEPRAZOLE (OMEPRAZOLE) (OMEPRAZOLE) [Concomitant]
  7. TAMSULOSIN (TAMSULOSIN) (TAMSULOSIN) [Concomitant]
  8. NAMENDA (MEMANTINE HYDROCHLORIDE) (MEMANTINE HYDROCHLORIDE) [Concomitant]
  9. ARICEPT (DONEPEZIL HYDROCHLORIDE) (DONEPEZIL HYDROCHLORIDE) [Concomitant]
  10. ONDANSETRON (ONDANSETRON) (ONDANSETRON) [Concomitant]
  11. HYDROCHLOROTHIAZIDE (HYDROCHLOROTHIAZIDE) (HYDROCHLOROTHIAZIDE) [Concomitant]
  12. ALLEGRA (FEXOFENADINE HYDROCHLORIDE) (FEXOFENADINE HYDROCHLORIDE) [Concomitant]
  13. ASPIRIN (ACETYLSALICYLIC ACID) (ACETYLSALICYLIC ACID) [Concomitant]

REACTIONS (1)
  - Muscle spasms [None]
